FAERS Safety Report 8998084 (Version 2)
Quarter: 2013Q2

REPORT INFORMATION
  Report Type: Spontaneous
  Country: US (occurrence: US)
  Receive Date: 20130104
  Receipt Date: 20130418
  Transmission Date: 20140414
  Serious: Yes (Hospitalization, Disabling, Other)
  Sender: FDA-Public Use
  Company Number: US-009507513-1212USA010560

PATIENT
  Sex: Female

DRUGS (5)
  1. FOSAMAX [Suspect]
     Indication: OSTEOPOROSIS
     Dosage: 70 MG, QW
     Route: 048
     Dates: start: 19980813, end: 20051111
  2. FOSAMAX [Suspect]
     Dosage: 70 MG, QW
     Route: 048
     Dates: start: 20101201
  3. ACTONEL [Suspect]
     Indication: OSTEOPOROSIS
     Dosage: 35 MG, UNK
     Route: 048
     Dates: start: 20051202, end: 20111025
  4. ACTONEL [Suspect]
     Indication: OSTEOPOROSIS PROPHYLAXIS
  5. ALENDRONATE SODIUM [Suspect]
     Indication: OSTEOPOROSIS PROPHYLAXIS
     Dosage: 70 MG, QW
     Route: 048
     Dates: start: 20101206, end: 20111025

REACTIONS (29)
  - Femur fracture [Unknown]
  - Femur fracture [Unknown]
  - Open reduction of fracture [Unknown]
  - Osteoporosis [Unknown]
  - Low turnover osteopathy [Unknown]
  - Multiple fractures [Unknown]
  - Femur fracture [Unknown]
  - Surgery [Unknown]
  - Ovarian operation [Unknown]
  - Rhabdomyosarcoma [Unknown]
  - Sternotomy [Unknown]
  - Surgery [Unknown]
  - Surgery [Unknown]
  - Diabetes mellitus [Not Recovered/Not Resolved]
  - Rheumatoid arthritis [Not Recovered/Not Resolved]
  - Herpes zoster [Unknown]
  - Oral surgery [Not Recovered/Not Resolved]
  - Blood cholesterol increased [Not Recovered/Not Resolved]
  - Anxiety [Not Recovered/Not Resolved]
  - Hypertension [Not Recovered/Not Resolved]
  - Chronic obstructive pulmonary disease [Not Recovered/Not Resolved]
  - Cataract operation [Unknown]
  - Pain [Not Recovered/Not Resolved]
  - Osteoarthritis [Unknown]
  - Androgenetic alopecia [Not Recovered/Not Resolved]
  - Dental prosthesis placement [Unknown]
  - Dental prosthesis placement [Unknown]
  - Hypersensitivity [Not Recovered/Not Resolved]
  - Gastrooesophageal reflux disease [Unknown]
